FAERS Safety Report 8237783-9 (Version None)
Quarter: 2012Q1

REPORT INFORMATION
  Report Type: 
  Country: None (occurrence: None)
  Receive Date: 20120326
  Receipt Date: 20120314
  Transmission Date: 20120608
  Serious: Yes (Hospitalization)
  Sender: FDA-Public Use
  Company Number: ACO_25861_2011

PATIENT
  Age: 51 Year
  Sex: Male

DRUGS (2)
  1. AMPYRA [Suspect]
     Indication: GAIT DISTURBANCE
     Dosage: 10 MG, QD, ORAL, 10 MG, Q 12 HRS, ORAL
     Route: 048
     Dates: start: 20110706, end: 20110701
  2. AMPYRA [Suspect]
     Indication: GAIT DISTURBANCE
     Dosage: 10 MG, QD, ORAL, 10 MG, Q 12 HRS, ORAL
     Route: 048
     Dates: start: 20110701, end: 20111001

REACTIONS (8)
  - NAUSEA [None]
  - DRUG INEFFECTIVE [None]
  - BLOOD PRESSURE DECREASED [None]
  - DYSPNOEA [None]
  - HYPERHIDROSIS [None]
  - INAPPROPRIATE SCHEDULE OF DRUG ADMINISTRATION [None]
  - HEADACHE [None]
  - CHEST DISCOMFORT [None]
